FAERS Safety Report 19648106 (Version 8)
Quarter: 2022Q4

REPORT INFORMATION
  Report Type: Report from Study
  Country: US (occurrence: US)
  Receive Date: 20210802
  Receipt Date: 20221209
  Transmission Date: 20230113
  Serious: No
  Sender: FDA-Public Use
  Company Number: US-NOVARTISTESTPH-NVSC2021US164446

PATIENT
  Sex: Female

DRUGS (1)
  1. KESIMPTA [Suspect]
     Active Substance: OFATUMUMAB
     Indication: Multiple sclerosis
     Dosage: 20 MG, QMO (SOLUTION)
     Route: 058

REACTIONS (5)
  - Peripheral swelling [Recovered/Resolved]
  - Hepatic enzyme increased [Unknown]
  - Device defective [Unknown]
  - Accidental exposure to product [Unknown]
  - Drug dose omission by device [Unknown]
